FAERS Safety Report 5580944-8 (Version None)
Quarter: 2007Q4

REPORT INFORMATION
  Report Type: 
  Country: None (occurrence: None)
  Receive Date: 20071130
  Receipt Date: 20070702
  Transmission Date: 20080405
  Serious: No
  Sender: FDA-Public Use
  Company Number: US200707001557

PATIENT
  Sex: Male

DRUGS (1)
  1. BYETTA [Suspect]
     Dosage: SEE IMAGE
     Route: 058

REACTIONS (4)
  - BLOOD GLUCOSE INCREASED [None]
  - NAUSEA [None]
  - STOMACH DISCOMFORT [None]
  - WEIGHT DECREASED [None]
